FAERS Safety Report 7338821-8 (Version None)
Quarter: 2011Q1

REPORT INFORMATION
  Report Type: 
  Country: None (occurrence: None)
  Receive Date: 20110308
  Receipt Date: 20110304
  Transmission Date: 20110831
  Serious: Yes (Disabling)
  Sender: FDA-Public Use
  Company Number: US-MERCK-1101USA02356

PATIENT

DRUGS (1)
  1. SINEMET [Suspect]
     Route: 048

REACTIONS (1)
  - DISABILITY [None]
